FAERS Safety Report 4633754-X (Version None)
Quarter: 2005Q2

REPORT INFORMATION
  Report Type: 
  Country: None (occurrence: None)
  Receive Date: 20050413
  Receipt Date: 20040730
  Transmission Date: 20051028
  Serious: Yes (Life-Threatening, Hospitalization)
  Sender: FDA-Public Use
  Company Number: PL-JNJFOC-20040606063

PATIENT
  Sex: Female
  Weight: 84 kg

DRUGS (7)
  1. REOPRO [Suspect]
     Indication: CORONARY ARTERY DISEASE
     Route: 042
  2. UNFRACTIONATED HEPARIN [Concomitant]
     Route: 042
  3. CLOPIDOGREL [Concomitant]
     Route: 049
  4. ACETYL SALICYLIC ACID USP BAT [Concomitant]
     Indication: CORONARY ARTERY DISEASE
     Route: 049
  5. SIMVASTATIN [Concomitant]
     Indication: CORONARY ARTERY DISEASE
     Route: 049
  6. GLICLAZIDE [Concomitant]
     Indication: DIABETES MELLITUS
     Route: 049
  7. ENALAPRIL [Concomitant]
     Indication: HYPERTENSION
     Route: 049

REACTIONS (1)
  - HYPOVOLAEMIC SHOCK [None]
